FAERS Safety Report 17462183 (Version 1)
Quarter: 2020Q1

REPORT INFORMATION
  Report Type: Spontaneous
  Country: NL (occurrence: NL)
  Receive Date: 20200226
  Receipt Date: 20200226
  Transmission Date: 20200409
  Serious: Yes (Other)
  Sender: FDA-Public Use
  Company Number: NL-TEVA-2020-NL-1191771

PATIENT
  Sex: Male
  Weight: 99 kg

DRUGS (1)
  1. FLUTICAZON PROPIONAAT MYLAN [Suspect]
     Active Substance: FLUTICASONE
     Indication: NASAL MUCOSAL DISORDER
     Dosage: NASAL SPRAY 50 MCG, 2X SO, 1 SPRAY, UNIT DOSE : 1 DOSAGE FORM
     Dates: start: 201901, end: 20190201

REACTIONS (1)
  - Vitreous detachment [Recovering/Resolving]
